FAERS Safety Report 9613269 (Version 2)
Quarter: 2013Q4

REPORT INFORMATION
  Report Type: Spontaneous
  Country: NL (occurrence: NL)
  Receive Date: 20131010
  Receipt Date: 20131030
  Transmission Date: 20140711
  Serious: Yes (Disabling, Other)
  Sender: FDA-Public Use
  Company Number: NL-PFIZER INC-2013289894

PATIENT
  Age: 40 Year
  Sex: Male
  Weight: 72 kg

DRUGS (2)
  1. EFEXOR XR [Suspect]
     Indication: ANXIETY
     Dosage: 37.5 DF, 1X/DAY
     Dates: start: 20000101
  2. EFEXOR XR [Interacting]
     Indication: DEPRESSION

REACTIONS (12)
  - Autoimmune disorder [Unknown]
  - Suicidal ideation [Unknown]
  - Stress [Unknown]
  - Neuralgia [Unknown]
  - Drug interaction [Unknown]
  - Sexual dysfunction [Unknown]
  - Social problem [Unknown]
  - Immune system disorder [Unknown]
  - Emotional disorder [Unknown]
  - Anxiety [Unknown]
  - Abdominal discomfort [Unknown]
  - Visual impairment [Unknown]
